FAERS Safety Report 19027244 (Version 1)
Quarter: 2021Q1

REPORT INFORMATION
  Report Type: Spontaneous
  Country: ME (occurrence: ME)
  Receive Date: 20210318
  Receipt Date: 20210318
  Transmission Date: 20210420
  Serious: Yes (Other)
  Sender: FDA-Public Use
  Company Number: ME-GLAXOSMITHKLINE-MECH2021GSK013959

PATIENT
  Age: 56 Year
  Sex: Female

DRUGS (1)
  1. DICLOFENAC [Suspect]
     Active Substance: DICLOFENAC
     Indication: BACK PAIN
     Dosage: 100 MG, BID

REACTIONS (8)
  - Eosinophilia [Unknown]
  - Gastrointestinal disorder [Unknown]
  - Cryptitis [Unknown]
  - Large intestinal ulcer [Recovered/Resolved]
  - Mucosal erosion [Recovered/Resolved]
  - Intestinal stenosis [Recovered/Resolved]
  - Occult blood positive [Unknown]
  - Lymphocytic infiltration [Unknown]
